FAERS Safety Report 9712342 (Version 1)
Quarter: 2013Q4

REPORT INFORMATION
  Report Type: Spontaneous
  Country: US (occurrence: US)
  Receive Date: 20131126
  Receipt Date: 20131126
  Transmission Date: 20140711
  Serious: No
  Sender: FDA-Public Use
  Company Number: US-BRISTOL-MYERS SQUIBB COMPANY-19163781

PATIENT
  Age: 56 Year
  Sex: Female
  Weight: 99.77 kg

DRUGS (4)
  1. BYDUREON 2MG SUSPENSION [Suspect]
     Indication: TYPE 2 DIABETES MELLITUS
     Route: 058
     Dates: start: 201209
  2. LANTUS [Concomitant]
  3. METFORMIN [Concomitant]
  4. AMARYL [Concomitant]

REACTIONS (2)
  - Weight increased [Unknown]
  - Injection site haemorrhage [Unknown]
